FAERS Safety Report 5758302-2 (Version None)
Quarter: 2008Q2

REPORT INFORMATION
  Report Type: 
  Country: None (occurrence: None)
  Receive Date: 20080604
  Receipt Date: 20080602
  Transmission Date: 20081010
  Serious: Yes (Other)
  Sender: FDA-Public Use
  Company Number: DE-JNJFOC-20070200388

PATIENT
  Sex: Female
  Weight: 60 kg

DRUGS (2)
  1. TOPAMAX [Suspect]
     Indication: EPILEPSY
     Route: 048
  2. KEPPRA [Concomitant]
     Indication: EPILEPSY
     Route: 048

REACTIONS (7)
  - ABDOMINAL DISCOMFORT [None]
  - ACIDOSIS [None]
  - AFFECT LABILITY [None]
  - AGGRESSION [None]
  - EXERCISE TOLERANCE DECREASED [None]
  - PARAESTHESIA [None]
  - SWEAT TEST ABNORMAL [None]
